FAERS Safety Report 4393480-1 (Version None)
Quarter: 2004Q3

REPORT INFORMATION
  Report Type: 
  Country: None (occurrence: None)
  Receive Date: 20040707
  Receipt Date: 20040707
  Transmission Date: 20050211
  Serious: Yes (Other)
  Sender: FDA-Public Use
  Company Number: None

PATIENT
  Age: 64 Year
  Sex: Female

DRUGS (7)
  1. BEXTRA [Suspect]
     Indication: ARTHRITIS
     Dosage: 10 MG PO Q DAY
     Route: 048
     Dates: start: 20020905, end: 20031201
  2. METHOTREXATE [Concomitant]
  3. AMBIEN [Concomitant]
  4. FOLIC ACID [Concomitant]
  5. ZANTAC [Concomitant]
  6. RAMIPRIL [Concomitant]
  7. METOXICAM [Concomitant]

REACTIONS (2)
  - ABNORMAL DREAMS [None]
  - HEADACHE [None]
